FAERS Safety Report 22192257 (Version 2)
Quarter: 2023Q4

REPORT INFORMATION
  Report Type: Spontaneous
  Country: US (occurrence: US)
  Receive Date: 20230410
  Receipt Date: 20231005
  Transmission Date: 20240109
  Serious: Yes (Other)
  Sender: FDA-Public Use
  Company Number: US-MLMSERVICE-20230327-4186782-1

PATIENT
  Sex: Male

DRUGS (2)
  1. EPINEPHRINE\LIDOCAINE HYDROCHLORIDE [Suspect]
     Active Substance: EPINEPHRINE\LIDOCAINE HYDROCHLORIDE
     Indication: Local anaesthesia
     Dosage: INJECTING LIDOCAINE 1% WITH EPINEPHRINE 1:200,000 (3 ML)
  2. ASPIRIN [Concomitant]
     Active Substance: ASPIRIN
     Dosage: 81 MG, 1X/DAY

REACTIONS (3)
  - Therapeutic response shortened [Recovered/Resolved]
  - Post procedural haemorrhage [Recovered/Resolved]
  - Arterial haemorrhage [Recovered/Resolved]
